FAERS Safety Report 14044407 (Version 3)
Quarter: 2017Q4

REPORT INFORMATION
  Report Type: Report from Study
  Country: None (occurrence: CH)
  Receive Date: 20171004
  Receipt Date: 20171025
  Transmission Date: 20180321
  Serious: Yes (Hospitalization, Other)
  Sender: FDA-Public Use
  Company Number: CH-ABBVIE-17K-151-2118188-00

PATIENT
  Sex: Male

DRUGS (1)
  1. DUODOPA [Suspect]
     Active Substance: CARBIDOPA\LEVODOPA
     Indication: PRODUCT USED FOR UNKNOWN INDICATION
     Dosage: MD: 9.0ML, CRD 6.3ML/H, CRN 4.0ML, ED 3.9ML, 24H THERAPY
     Route: 050
     Dates: start: 20150414

REACTIONS (5)
  - Aspiration [Unknown]
  - Pneumonia aspiration [Unknown]
  - Device kink [Recovered/Resolved]
  - Pneumonia [Recovered/Resolved]
  - Device connection issue [Recovered/Resolved]

NARRATIVE: CASE EVENT DATE: 2017
